FAERS Safety Report 8286461-9 (Version None)
Quarter: 2012Q2

REPORT INFORMATION
  Report Type: 
  Country: None (occurrence: None)
  Receive Date: 20120411
  Receipt Date: 20120402
  Transmission Date: 20120825
  Serious: Yes (Other)
  Sender: FDA-Public Use
  Company Number: 2012S1000320

PATIENT
  Age: 58 Year
  Sex: Female
  Weight: 57.2 kg

DRUGS (5)
  1. CONIEL [Concomitant]
  2. ASPIRIN [Concomitant]
  3. ALENDRONATE SODIUM [Concomitant]
  4. DESYREL [Concomitant]
  5. LIVALO [Suspect]
     Indication: HYPERCHOLESTEROLAEMIA
     Dosage: 2 MG;1X;PO
     Route: 048
     Dates: start: 20080108, end: 20120213

REACTIONS (1)
  - RHABDOMYOLYSIS [None]
